FAERS Safety Report 9483835 (Version 3)
Quarter: 2013Q3

REPORT INFORMATION
  Report Type: Spontaneous
  Country: JP (occurrence: JP)
  Receive Date: 20130828
  Receipt Date: 20130909
  Transmission Date: 20140515
  Serious: Yes (Other)
  Sender: FDA-Public Use
  Company Number: PHHY2013JP077103

PATIENT
  Age: 60 Year
  Sex: Female
  Weight: 52 kg

DRUGS (8)
  1. EXJADE [Suspect]
     Indication: IRON OVERLOAD
     Dosage: 250 MG, DAILY
     Route: 048
     Dates: start: 200811, end: 200905
  2. EXJADE [Suspect]
     Dosage: UNK UKN, UNK
     Route: 048
     Dates: start: 201011, end: 201101
  3. EXJADE [Suspect]
     Dosage: UNK UKN, UNK
     Route: 048
     Dates: start: 201109, end: 201212
  4. EXJADE [Suspect]
     Dosage: 500 MG, DAILY
     Route: 048
     Dates: start: 201306
  5. VITANEURIN [Concomitant]
     Indication: NERVE COMPRESSION
     Dosage: 2 DF, UNK
     Route: 048
     Dates: start: 20130617
  6. URSO [Concomitant]
     Indication: LIVER DISORDER
     Dosage: 300 MG, UNK
     Route: 048
     Dates: start: 20130712
  7. BAKTAR [Concomitant]
     Indication: PROPHYLAXIS
     Dosage: UNK UKN, UNK
     Route: 048
     Dates: start: 20130723
  8. BAKTAR [Concomitant]
     Indication: PNEUMOCYSTIS JIROVECII INFECTION

REACTIONS (9)
  - Optic neuritis [Not Recovered/Not Resolved]
  - Visual field defect [Unknown]
  - Eye disorder [Unknown]
  - Liver disorder [Unknown]
  - Aspartate aminotransferase increased [Unknown]
  - Blood alkaline phosphatase increased [Unknown]
  - Gamma-glutamyltransferase increased [Unknown]
  - Cardiac disorder [Unknown]
  - Brain natriuretic peptide increased [Unknown]
